FAERS Safety Report 24991779 (Version 1)
Quarter: 2025Q1

REPORT INFORMATION
  Report Type: Spontaneous
  Country: US (occurrence: US)
  Receive Date: 20250220
  Receipt Date: 20250220
  Transmission Date: 20250409
  Serious: Yes (Hospitalization, Other)
  Sender: TEVA
  Company Number: US-TEVA-VS-3298676

PATIENT
  Age: 44 Year
  Sex: Male

DRUGS (5)
  1. POSACONAZOLE [Suspect]
     Active Substance: POSACONAZOLE
     Indication: Meningitis coccidioides
     Route: 065
  2. AMBISOME [Suspect]
     Active Substance: AMPHOTERICIN B
     Indication: Meningitis coccidioides
     Dosage: INJECTION;  VIA OMMAYA RESERVOIR
     Route: 037
  3. AMBISOME [Suspect]
     Active Substance: AMPHOTERICIN B
     Indication: Meningitis coccidioides
     Route: 037
  4. FLUCONAZOLE [Suspect]
     Active Substance: FLUCONAZOLE
     Indication: Meningitis coccidioides
     Route: 065
  5. AMPHOTERICIN B [Suspect]
     Active Substance: AMPHOTERICIN B
     Indication: Meningitis coccidioides
     Route: 042

REACTIONS (4)
  - Hepatic failure [Unknown]
  - Drug ineffective [Unknown]
  - Headache [Unknown]
  - Acute kidney injury [Unknown]

NARRATIVE: CASE EVENT DATE: 20220101
